FAERS Safety Report 22917495 (Version 2)
Quarter: 2023Q4

REPORT INFORMATION
  Report Type: Other
  Country: US (occurrence: US)
  Receive Date: 20230907
  Receipt Date: 20231116
  Transmission Date: 20240109
  Serious: No
  Sender: FDA-Public Use
  Company Number: US-TRAVERE-2023TVT00182

PATIENT
  Age: 39 Year
  Sex: Male

DRUGS (3)
  1. FILSPARI [Suspect]
     Active Substance: SPARSENTAN
     Indication: IgA nephropathy
     Route: 048
  2. FILSPARI [Suspect]
     Active Substance: SPARSENTAN
     Route: 048
     Dates: start: 202305
  3. PREDNISONE [Concomitant]
     Active Substance: PREDNISONE

REACTIONS (2)
  - Nausea [Recovered/Resolved]
  - Blood creatinine increased [Unknown]
